FAERS Safety Report 9097881 (Version 1)
Quarter: 2013Q1

REPORT INFORMATION
  Report Type: Report from Study
  Country: US (occurrence: US)
  Receive Date: 20130212
  Receipt Date: 20130212
  Transmission Date: 20140127
  Serious: Yes (Hospitalization)
  Sender: FDA-Public Use
  Company Number: US-ROCHE-1186980

PATIENT
  Age: 50 Year
  Sex: Female
  Weight: 64 kg

DRUGS (6)
  1. BEVACIZUMAB [Suspect]
     Indication: BREAST CANCER
     Dosage: 10 MG/KG OVER 30-90 MIN ON DAY 1 OF WKS 1, 3, 5, 7, 9, 11, 13, 15 AND 17, LAST ADMINISTERED ON 07/DE
     Route: 065
     Dates: start: 20120803
  2. PACLITAXEL [Suspect]
     Indication: BREAST CANCER
     Dosage: 80 MG/M2 IV OVER 1 HR ON DAY 1 OF WKS 1-12, LAST ADMINISTERED ON 26/OCT/2012
     Route: 042
     Dates: start: 20120803
  3. CARBOPLATIN [Suspect]
     Indication: BREAST CANCER
     Dosage: AUC 6 IV OVER 30 MIN ON DAY 1 OF WKS 1, 4, 7 AND 10,  LAST ADMINISTERED ON 12/OCT/2012
     Route: 042
     Dates: start: 20120803
  4. DOXORUBICIN [Suspect]
     Indication: BREAST CANCER
     Dosage: 60 MG/M2/ IV OVER 5-10 MIN ON DAY 1 OF WKS 13, 15, 17 AND 19,  LAST ADMINISTERED ON 21/DEC/2012
     Route: 042
     Dates: start: 20120803
  5. CYCLOPHOSPHAMIDE [Suspect]
     Indication: BREAST CANCER
     Dosage: 600 MG/M2 IV OVER 5-30 MIN ON DAY 1 OF WKS 13, 15, 17 AND 19,  LAST ADMINISTERED ON 21/DEC/2012
     Route: 042
     Dates: start: 20120803
  6. PEGFILGRASTIM [Suspect]
     Indication: BREAST CANCER
     Dosage: LAST ADMINISTERED ON 22/DEC/2012
     Route: 065

REACTIONS (2)
  - Myositis [Not Recovered/Not Resolved]
  - Muscle rupture [Not Recovered/Not Resolved]
